FAERS Safety Report 8193006-0 (Version None)
Quarter: 2012Q1

REPORT INFORMATION
  Report Type: 
  Country: None (occurrence: None)
  Receive Date: 20120308
  Receipt Date: 20120302
  Transmission Date: 20120608
  Serious: No
  Sender: FDA-Public Use
  Company Number: US-BAYER-2012-022472

PATIENT
  Age: 23 Year
  Sex: Female

DRUGS (1)
  1. ULTRAVIST 150 [Suspect]
     Dosage: 75 ML, ONCE
     Route: 042

REACTIONS (2)
  - SNEEZING [None]
  - EYE PRURITUS [None]
